FAERS Safety Report 6028479-2 (Version None)
Quarter: 2009Q1

REPORT INFORMATION
  Report Type: 
  Country: None (occurrence: None)
  Receive Date: 20090106
  Receipt Date: 20090102
  Transmission Date: 20090719
  Serious: Yes (Hospitalization, Other)
  Sender: FDA-Public Use
  Company Number: SE-RB-007773-09

PATIENT
  Age: 54 Year
  Sex: Female

DRUGS (2)
  1. SUBUTEX [Suspect]
     Indication: DRUG ABUSE
     Dosage: DOSE UNKNOWN
     Route: 060
     Dates: start: 20080901
  2. SUBOXONE [Suspect]
     Indication: DRUG ABUSE
     Dosage: DOSE UNKNOWN
     Route: 060
     Dates: start: 20080601, end: 20080901

REACTIONS (3)
  - CARDIAC DISORDER [None]
  - CHEST PAIN [None]
  - OEDEMA PERIPHERAL [None]
